FAERS Safety Report 7422796-7 (Version None)
Quarter: 2011Q2

REPORT INFORMATION
  Report Type: 
  Country: None (occurrence: None)
  Receive Date: 20110414
  Receipt Date: 20110414
  Transmission Date: 20111010
  Serious: No
  Sender: FDA-Public Use
  Company Number: None

PATIENT
  Age: 67 Year
  Sex: Male
  Weight: 107.7 kg

DRUGS (1)
  1. ZOLEDRONIC ACID [Suspect]
     Dosage: 4 MG ONCE IV
     Route: 042
     Dates: start: 20110103, end: 20110203

REACTIONS (1)
  - RENAL FAILURE ACUTE [None]
